FAERS Safety Report 21667467 (Version 1)
Quarter: 2022Q4

REPORT INFORMATION
  Report Type: Spontaneous
  Country: FR (occurrence: FR)
  Receive Date: 20221201
  Receipt Date: 20221201
  Transmission Date: 20230113
  Serious: Yes (Other)
  Sender: FDA-Public Use
  Company Number: None

PATIENT
  Age: 53 Year
  Sex: Male

DRUGS (10)
  1. ATORVASTATIN [Suspect]
     Active Substance: ATORVASTATIN
     Indication: Dyslipidaemia
     Dates: start: 201103, end: 201811
  2. AMLODIPINE BESYLATE [Concomitant]
     Active Substance: AMLODIPINE BESYLATE
  3. TACROLIMUS [Concomitant]
     Active Substance: TACROLIMUS
  4. METFORMIN [Concomitant]
     Active Substance: METFORMIN HYDROCHLORIDE
  5. RAMIPRIL [Concomitant]
     Active Substance: RAMIPRIL
  6. ALLOPURINOL [Concomitant]
     Active Substance: ALLOPURINOL
  7. KARDEGIC [Concomitant]
     Active Substance: ASPIRIN DL-LYSINE
  8. PREDNISONE [Concomitant]
     Active Substance: PREDNISONE
  9. RILMENIDINE [Concomitant]
     Active Substance: RILMENIDINE
  10. CINACALCET HYDROCHLORIDE [Concomitant]
     Active Substance: CINACALCET HYDROCHLORIDE

REACTIONS (2)
  - Hepatic cytolysis [Recovered/Resolved]
  - Hyperbilirubinaemia [Recovered/Resolved]

NARRATIVE: CASE EVENT DATE: 20150101
